FAERS Safety Report 21584878 (Version 1)
Quarter: 2022Q4

REPORT INFORMATION
  Report Type: Spontaneous
  Country: US (occurrence: US)
  Receive Date: 20221111
  Receipt Date: 20221111
  Transmission Date: 20230112
  Serious: Yes (Hospitalization, Other)
  Sender: FDA-Public Use
  Company Number: US-CC-92480-MM-002-1011010-20210811-0001SG

PATIENT
  Age: 79 Year
  Sex: Male
  Weight: 95 kg

DRUGS (21)
  1. DARATUMUMAB [Suspect]
     Active Substance: DARATUMUMAB
     Indication: Plasma cell myeloma
     Route: 042
     Dates: start: 20210803, end: 20210803
  2. DEXAMETHASONE [Suspect]
     Active Substance: DEXAMETHASONE
     Indication: Plasma cell myeloma
     Route: 048
     Dates: start: 20210803, end: 20210803
  3. DEXAMETHASONE [Suspect]
     Active Substance: DEXAMETHASONE
     Route: 048
     Dates: start: 20210810, end: 20210810
  4. ACETAMINOPHEN [Concomitant]
     Active Substance: ACETAMINOPHEN
     Indication: Pain
     Dosage: 1000 MG X 1 X 6 HOURS
     Route: 048
     Dates: start: 20200427
  5. B COMPLEX [CALCIUM PANTOTHENATE;CYANOCOBALAMIN;NICOTINAMIDE;PYRIDOXINE [Concomitant]
     Indication: Supplementation therapy
     Dosage: 1 TABLET X 1 X 1 DAYS
     Route: 048
     Dates: start: 20140918
  6. CALCIUM CARBONATE [Concomitant]
     Active Substance: CALCIUM CARBONATE
     Indication: Supplementation therapy
     Dosage: 1250 MG X 1 X 1 DAYS
     Route: 048
     Dates: start: 20210217
  7. CHOLECALCIFEROL [Concomitant]
     Active Substance: CHOLECALCIFEROL
     Indication: Supplementation therapy
     Dosage: 2000 IU X 1 X 1 DAYS
     Route: 048
     Dates: start: 20161201
  8. FERROUS SULFATE [Concomitant]
     Active Substance: FERROUS SULFATE
     Indication: Supplementation therapy
     Dosage: 324 MG X 1 X 1 DAYS
     Route: 048
     Dates: start: 20200423
  9. FUROSEMIDE [Concomitant]
     Active Substance: FUROSEMIDE
     Indication: Coronary artery disease
     Dosage: 80 MG X 1 X 1 DAYS
     Route: 048
     Dates: start: 20210409
  10. K PHOS NEUTRAL [Concomitant]
     Active Substance: POTASSIUM PHOSPHATE, MONOBASIC\SODIUM PHOSPHATE, DIBASIC, ANHYDROUS\SODIUM PHOSPHATE, MONOBASIC, MON
     Indication: Supplementation therapy
     Dosage: 250 MG X 2 X 1 DAYS
     Route: 048
     Dates: start: 20210322
  11. LEXAPRO [Concomitant]
     Active Substance: ESCITALOPRAM OXALATE
     Indication: Persistent depressive disorder
     Dosage: 10 MG X 1 X 1 DAYS
     Route: 048
     Dates: start: 20210120
  12. LOSARTAN [Concomitant]
     Active Substance: LOSARTAN
     Indication: Hypertension
     Dosage: 50 MG X 1 X 1 DAYS
     Route: 048
     Dates: start: 20210223
  13. METOPROLOL SUCCINATE [Concomitant]
     Active Substance: METOPROLOL SUCCINATE
     Dosage: 1.5 TABLET X 1 X 1 DAYS
     Route: 048
     Dates: start: 20210422
  14. IRON\VITAMINS [Concomitant]
     Active Substance: IRON\VITAMINS
     Indication: Supplementation therapy
     Dosage: 1 TABLET X 1 X 1 DAYS
     Route: 048
     Dates: start: 20140918
  15. OLANZAPINE [Concomitant]
     Active Substance: OLANZAPINE
     Indication: Nausea
     Dosage: 5 MG X 1 X 1 DAYS
     Route: 048
     Dates: start: 20210513
  16. POTASSIUM CHLORIDE [Concomitant]
     Active Substance: POTASSIUM CHLORIDE
     Indication: Supplementation therapy
     Dosage: 1 TABLET X 2 X 1 DAYS
     Route: 048
     Dates: start: 20210223
  17. RANOLAZINE [Concomitant]
     Active Substance: RANOLAZINE
     Indication: Coronary artery disease
     Dosage: 500 MG X 2 X 1 DAYS
     Route: 048
     Dates: start: 20201217
  18. ROSUVASTATIN [Concomitant]
     Active Substance: ROSUVASTATIN
     Indication: Coronary artery disease
     Dosage: 5 MG X 1 X 1 DAYS
     Route: 048
     Dates: start: 20210104
  19. TESTOSTERONE [Concomitant]
     Active Substance: TESTOSTERONE
     Indication: Blood testosterone decreased
     Dosage: 4 APPLICATION X 1 X 1 DAYS
     Route: 061
     Dates: start: 20201118
  20. VALACYCLOVIR [Concomitant]
     Active Substance: VALACYCLOVIR HYDROCHLORIDE
     Indication: Prophylaxis
     Dosage: 500 MG X 1 X 1 DAYS
     Route: 048
     Dates: start: 20210507
  21. XARELTO [Concomitant]
     Active Substance: RIVAROXABAN
     Indication: Atrial fibrillation
     Dosage: 1 TABLET X 1 X 1 DAYS
     Route: 048
     Dates: start: 20210422

REACTIONS (3)
  - Bradycardia [Recovered/Resolved]
  - Squamous cell carcinoma [Recovered/Resolved]
  - Aortic valve disease [Not Recovered/Not Resolved]

NARRATIVE: CASE EVENT DATE: 20210810
